FAERS Safety Report 8316787-1 (Version None)
Quarter: 2012Q2

REPORT INFORMATION
  Report Type: 
  Country: None (occurrence: None)
  Receive Date: 20120425
  Receipt Date: 20120423
  Transmission Date: 20120825
  Serious: Yes (Other)
  Sender: FDA-Public Use
  Company Number: ADR-2011-10972

PATIENT
  Age: 28 Year
  Sex: Male

DRUGS (2)
  1. FENTANYL [Concomitant]
  2. LIORESAL [Suspect]
     Indication: MUSCLE SPASTICITY
     Dosage: 599.8 MCG, DAILY, INTRA
     Route: 037

REACTIONS (4)
  - WOUND DEHISCENCE [None]
  - IMPLANT SITE EFFUSION [None]
  - IMPLANT SITE HAEMORRHAGE [None]
  - CULTURE POSITIVE [None]
